FAERS Safety Report 8458166-2 (Version None)
Quarter: 2012Q2

REPORT INFORMATION
  Report Type: 
  Country: None (occurrence: None)
  Receive Date: 20120323
  Receipt Date: 20111025
  Transmission Date: 20120825
  Serious: Yes (Hospitalization)
  Sender: FDA-Public Use
  Company Number: 163-21880-11102970

PATIENT
  Age: 58 Year
  Sex: Female
  Weight: 58.9676 kg

DRUGS (8)
  1. LENALIDOMIDE [Suspect]
     Indication: MULTIPLE MYELOMA
     Dosage: 15 MG, DAILY X 21 DAYS, PO
     Route: 048
     Dates: start: 20070412
  2. FOLIC ACID [Concomitant]
  3. OMEPRAZOLE [Concomitant]
  4. MULTIVITAMIN [Concomitant]
  5. IRON [Concomitant]
  6. CYMBALTA [Concomitant]
  7. FONDAPARINUX SODIUM [Concomitant]
  8. KLONOPIN [Concomitant]

REACTIONS (1)
  - THROMBOSIS [None]
